FAERS Safety Report 9856218 (Version 1)
Quarter: 2014Q1

REPORT INFORMATION
  Report Type: Spontaneous
  Country: US (occurrence: US)
  Receive Date: 20140130
  Receipt Date: 20140130
  Transmission Date: 20141002
  Serious: Yes (Other)
  Sender: FDA-Public Use
  Company Number: US-PFIZER INC-2014026322

PATIENT
  Age: 44 Year
  Sex: Female
  Weight: 68 kg

DRUGS (9)
  1. PREMARIN [Suspect]
     Indication: VULVOVAGINAL DRYNESS
     Dosage: UNK, 2X/WEEK
     Route: 067
     Dates: end: 201312
  2. PAXIL [Concomitant]
     Indication: PANIC DISORDER
     Dosage: UNK
  3. PAXIL [Concomitant]
     Indication: ANXIETY DISORDER
  4. CLONAZEPAM [Concomitant]
     Indication: PANIC DISORDER
     Dosage: UNK
  5. ALPRAZOLAM [Concomitant]
     Indication: PANIC DISORDER
     Dosage: UNK, AS NEEDED
  6. ALPRAZOLAM [Concomitant]
     Indication: ANXIETY DISORDER
  7. NEXIUM [Concomitant]
     Indication: GASTROOESOPHAGEAL REFLUX DISEASE
     Dosage: UNK
  8. DIFLUCAN [Concomitant]
     Dosage: UNK
  9. ESTROGENS ESTERFIED/METHYLTESTOSTERONE [Concomitant]
     Indication: HORMONE REPLACEMENT THERAPY
     Dosage: UNK

REACTIONS (8)
  - Atypical pneumonia [Unknown]
  - Blood cholesterol increased [Unknown]
  - Hypovitaminosis [Unknown]
  - Malaise [Unknown]
  - Nasopharyngitis [Unknown]
  - Influenza [Unknown]
  - Lung disorder [Unknown]
  - Lung disorder [Unknown]
